FAERS Safety Report 11738496 (Version 1)
Quarter: 2015Q4

REPORT INFORMATION
  Report Type: Spontaneous
  Country: US (occurrence: US)
  Receive Date: 20151113
  Receipt Date: 20151113
  Transmission Date: 20160304
  Serious: Yes (Hospitalization)
  Sender: FDA-Public Use
  Company Number: US-GUERBET LLC-1044186

PATIENT
  Sex: Male

DRUGS (1)
  1. OXILAN [Suspect]
     Active Substance: IOXILAN
     Indication: PERCUTANEOUS CORONARY INTERVENTION

REACTIONS (2)
  - Chest pain [Unknown]
  - Haematoma [Unknown]
